FAERS Safety Report 21020300 (Version 1)
Quarter: 2022Q2

REPORT INFORMATION
  Report Type: Report from Study
  Country: AR (occurrence: AR)
  Receive Date: 20220628
  Receipt Date: 20220628
  Transmission Date: 20220721
  Serious: Yes (Hospitalization)
  Sender: FDA-Public Use
  Company Number: AR-BAYER-2022A087447

PATIENT
  Age: 28 Year
  Sex: Female

DRUGS (4)
  1. VENTAVIS [Suspect]
     Active Substance: ILOPROST
     Indication: Pulmonary hypertension
     Dosage: 5 MCG 9 TIMES PER DAY
     Route: 055
     Dates: start: 20100210
  2. SILDENAFIL [Concomitant]
     Active Substance: SILDENAFIL
     Indication: Pulmonary hypertension
     Dosage: UNK
  3. MACITENTAN [Concomitant]
     Active Substance: MACITENTAN
     Indication: Pulmonary arterial hypertension
     Dosage: UNK
  4. DANANTIZOL [Concomitant]
     Indication: Hyperthyroidism
     Dosage: UNK

REACTIONS (2)
  - Lung disorder [Recovered/Resolved with Sequelae]
  - Cardioversion [Recovered/Resolved with Sequelae]

NARRATIVE: CASE EVENT DATE: 20220501
